FAERS Safety Report 6913080-6 (Version None)
Quarter: 2010Q3

REPORT INFORMATION
  Report Type: 
  Country: None (occurrence: None)
  Receive Date: 20100806
  Receipt Date: 20090713
  Transmission Date: 20110219
  Serious: No
  Sender: FDA-Public Use
  Company Number: US-PFIZER INC-2009222381

PATIENT
  Sex: Male

DRUGS (3)
  1. DETROL LA [Suspect]
     Dosage: 4 MG, UNK
  2. OXYBUTYNIN CHLORIDE [Suspect]
     Dosage: 5 MG, UNK
  3. TROSPIUM CHLORIDE [Suspect]
     Dosage: 60 MG, UNK

REACTIONS (2)
  - DRUG INEFFECTIVE [None]
  - DRY MOUTH [None]
